FAERS Safety Report 9536444 (Version 1)
Quarter: 2013Q2

REPORT INFORMATION
  Report Type: Spontaneous
  Country: US (occurrence: None)
  Receive Date: 20130503
  Receipt Date: 20130503
  Transmission Date: 20140414
  Serious: No
  Sender: FDA-Public Use
  Company Number: 1000043434

PATIENT
  Age: 66 Year
  Sex: Male

DRUGS (6)
  1. DALIRESP (ROFLUMILAST) [Suspect]
     Indication: CHRONIC OBSTRUCTIVE PULMONARY DISEASE
     Route: 048
     Dates: start: 20130312
  2. PREDNISONE [Concomitant]
  3. VITAMIN D [Concomitant]
  4. AZITHROMYCIN [Concomitant]
  5. SINGULAIR [Concomitant]
  6. CLARITIN (LORATADINE) [Concomitant]

REACTIONS (3)
  - Tremor [None]
  - Insomnia [None]
  - Back pain [None]
